FAERS Safety Report 17031774 (Version 1)
Quarter: 2019Q4

REPORT INFORMATION
  Report Type: Spontaneous
  Country: US (occurrence: US)
  Receive Date: 20191012
  Receipt Date: 20191012
  Transmission Date: 20200122
  Serious: Yes (Death, Hospitalization)
  Sender: FDA-Public Use
  Company Number: None

PATIENT
  Age: 26 Year
  Sex: Male
  Weight: 71.4 kg

DRUGS (6)
  1. DAUNOROBICIN [Suspect]
     Active Substance: DAUNORUBICIN
     Dates: end: 20191007
  2. VINCRISTINE SULFATE. [Suspect]
     Active Substance: VINCRISTINE SULFATE
     Dates: end: 20191007
  3. DEXAMETHASONE. [Suspect]
     Active Substance: DEXAMETHASONE
     Dates: end: 20191007
  4. METHOTREXATE. [Suspect]
     Active Substance: METHOTREXATE
     Dates: end: 20190923
  5. ONCASPAR [Suspect]
     Active Substance: PEGASPARGASE
     Dates: end: 20190918
  6. CYTARABINE. [Suspect]
     Active Substance: CYTARABINE
     Dates: end: 20190913

REACTIONS (8)
  - Fatigue [None]
  - Fall [None]
  - Seizure [None]
  - Haemorrhage intracranial [None]
  - Headache [None]
  - Asthenia [None]
  - Photophobia [None]
  - Brain oedema [None]

NARRATIVE: CASE EVENT DATE: 20191007
